FAERS Safety Report 13932504 (Version 1)
Quarter: 2017Q3

REPORT INFORMATION
  Report Type: Report from Study
  Country: US (occurrence: US)
  Receive Date: 20170904
  Receipt Date: 20170904
  Transmission Date: 20171127
  Serious: Yes (Other)
  Sender: FDA-Public Use
  Company Number: US-ROCHE-1987602

PATIENT

DRUGS (7)
  1. HEPARIN [Concomitant]
     Active Substance: HEPARIN SODIUM
     Dosage: CONTINUOUS INFUSION OF 1,000 U/H FOR 24 HR.
     Route: 040
  2. ALTEPLASE. [Suspect]
     Active Substance: ALTEPLASE
     Dosage: 100 MG OF RT-PA: 3-H INFUSION REGIMEN (AN INITIAL 10-MG BOLUS FOLLOWED BY 50 MG FOR THE 1ST H, THEN
     Route: 040
  3. ALTEPLASE. [Suspect]
     Active Substance: ALTEPLASE
     Indication: MYOCARDIAL INFARCTION
     Dosage: 100 MG OF RT-PA: 90-MIN CONTROLLED INFUSION (15-MG BOLUS FOLLOWED BY 50 MG OVER 30 MIN, THEN 35 MG O
     Route: 040
  4. ASPIRIN. [Concomitant]
     Active Substance: ASPIRIN
     Dosage: WHILE RECEIVING HEPARIN
     Route: 048
  5. ASPIRIN. [Concomitant]
     Active Substance: ASPIRIN
     Dosage: DOSE INCREASED TO 325 MG AFTER HEPARIN ADMINISTRATION.
     Route: 048
  6. HEPARIN [Concomitant]
     Active Substance: HEPARIN SODIUM
     Indication: MYOCARDIAL INFARCTION
     Dosage: 5,000 U WITH IN 90 MINS OF R-TPA THERAPY
     Route: 040
  7. ASPIRIN. [Concomitant]
     Active Substance: ASPIRIN
     Indication: MYOCARDIAL INFARCTION
     Dosage: BEFORE R-TPA INFUSION
     Route: 048

REACTIONS (4)
  - Gastrointestinal haemorrhage [Unknown]
  - Haematemesis [Unknown]
  - Haemoptysis [Unknown]
  - Retroperitoneal haemorrhage [Unknown]
